FAERS Safety Report 13438783 (Version 1)
Quarter: 2017Q2

REPORT INFORMATION
  Report Type: Spontaneous
  Country: US (occurrence: US)
  Receive Date: 20170413
  Receipt Date: 20170413
  Transmission Date: 20170830
  Serious: No
  Sender: FDA-Public Use
  Company Number: US-ROCHE-765721

PATIENT
  Sex: Female

DRUGS (1)
  1. ROCEPHIN [Suspect]
     Active Substance: CEFTRIAXONE SODIUM
     Indication: PRODUCT USED FOR UNKNOWN INDICATION
     Dosage: GIVEN OVER A COURSE OF 3-4 MINUTES (RECOMMENDED 30 MINUTES)
     Route: 042

REACTIONS (5)
  - Drug administration error [Unknown]
  - Chest pain [Unknown]
  - Musculoskeletal pain [Unknown]
  - Erythema [Unknown]
  - Back pain [Unknown]
